FAERS Safety Report 6150003-4 (Version None)
Quarter: 2009Q2

REPORT INFORMATION
  Report Type: 
  Country: None (occurrence: None)
  Receive Date: 20090409
  Receipt Date: 20090401
  Transmission Date: 20091009
  Serious: Yes (Other)
  Sender: FDA-Public Use
  Company Number: B0565289A

PATIENT
  Sex: Male

DRUGS (4)
  1. REQUIP XL [Suspect]
     Indication: PARKINSON'S DISEASE
     Dosage: 12MG PER DAY
     Route: 048
     Dates: start: 20081218, end: 20090312
  2. MADOPAR [Concomitant]
     Dosage: 600MG PER DAY
     Route: 065
  3. REQUIP [Concomitant]
     Indication: PARKINSON'S DISEASE
     Dosage: 4MG THREE TIMES PER DAY
     Route: 065
     Dates: end: 20081201
  4. ENTACAPONE [Concomitant]
     Dosage: 500MG PER DAY
     Route: 048

REACTIONS (1)
  - AGGRESSION [None]
